FAERS Safety Report 5584667-0 (Version None)
Quarter: 2008Q1

REPORT INFORMATION
  Report Type: 
  Country: None (occurrence: None)
  Receive Date: 20080103
  Receipt Date: 20071221
  Transmission Date: 20080703
  Serious: Yes (Hospitalization, Other)
  Sender: FDA-Public Use
  Company Number: 2007SP025369

PATIENT
  Age: 49 Year
  Sex: Male

DRUGS (3)
  1. PEG-INTRON [Suspect]
     Indication: HEPATITIS C
     Dosage: SC
     Route: 058
     Dates: start: 20071128, end: 20071219
  2. REBETOL [Suspect]
     Indication: HEPATITIS C
     Dosage: PO
     Route: 048
     Dates: start: 20071128, end: 20071220
  3. ACTOS [Suspect]
     Indication: DIABETES MELLITUS
     Dosage: PO
     Route: 048

REACTIONS (3)
  - CARDIAC FAILURE [None]
  - CONDITION AGGRAVATED [None]
  - DIABETES MELLITUS [None]
